FAERS Safety Report 25117400 (Version 1)
Quarter: 2025Q1

REPORT INFORMATION
  Report Type: Spontaneous
  Country: US (occurrence: US)
  Receive Date: 20250325
  Receipt Date: 20250325
  Transmission Date: 20250408
  Serious: Yes (Other)
  Sender: MYLAN
  Company Number: US-MYLANLABS-2025M1023895

PATIENT
  Age: 16 Year
  Sex: Female

DRUGS (1)
  1. ESTRADIOL [Suspect]
     Active Substance: ESTRADIOL
     Indication: Premature menopause

REACTIONS (6)
  - Microgenia [Unknown]
  - Deafness [Unknown]
  - Progeria [Unknown]
  - Lipodystrophy acquired [Unknown]
  - Condition aggravated [Unknown]
  - Off label use [Unknown]
